FAERS Safety Report 9005428 (Version 1)
Quarter: 2013Q1

REPORT INFORMATION
  Report Type: Spontaneous
  Country: US (occurrence: US)
  Receive Date: 20130108
  Receipt Date: 20130108
  Transmission Date: 20140127
  Serious: No
  Sender: FDA-Public Use
  Company Number: US-BAYER-2012-133876

PATIENT
  Age: 56 Year
  Sex: Female

DRUGS (1)
  1. EOVIST [Suspect]
     Indication: NUCLEAR MAGNETIC RESONANCE IMAGING
     Dosage: 8 ML, ONCE
     Dates: start: 20121219, end: 20121219

REACTIONS (2)
  - Dizziness [None]
  - Rash [Recovering/Resolving]
